FAERS Safety Report 8846514 (Version 1)
Quarter: 2012Q4

REPORT INFORMATION
  Report Type: 
  Country: US (occurrence: US)
  Receive Date: 20121017
  Receipt Date: 20121017
  Transmission Date: 20130627
  Serious: Yes (Death)
  Sender: FDA-Public Use
  Company Number: US-GLAXOSMITHKLINE-A0765469A

PATIENT
  Age: 49 Year
  Sex: Female

DRUGS (5)
  1. TYKERB [Suspect]
     Indication: BREAST CANCER
     Dosage: 5TAB Per day
     Route: 048
     Dates: start: 200812
  2. NAVANE [Concomitant]
  3. COGENTIN [Concomitant]
  4. LAMICTAL [Concomitant]
  5. AVASTIN (SIMVASTATIN) [Concomitant]

REACTIONS (3)
  - Death [Fatal]
  - Feeling drunk [Recovered/Resolved]
  - Poor quality sleep [Not Recovered/Not Resolved]
